FAERS Safety Report 11450608 (Version 3)
Quarter: 2016Q1

REPORT INFORMATION
  Report Type: Report from Study
  Country: US (occurrence: US)
  Receive Date: 20150903
  Receipt Date: 20160128
  Transmission Date: 20160525
  Serious: Yes (Other)
  Sender: FDA-Public Use
  Company Number: PHEH2015US016820

PATIENT
  Sex: Female
  Weight: 95.24 kg

DRUGS (1)
  1. GILENYA [Suspect]
     Active Substance: FINGOLIMOD HYDROCHLORIDE
     Indication: MULTIPLE SCLEROSIS
     Dosage: 0.5 MG, QD
     Route: 048
     Dates: start: 20150529

REACTIONS (4)
  - White blood cell count decreased [Not Recovered/Not Resolved]
  - Asthenopia [Recovering/Resolving]
  - Vision blurred [Recovering/Resolving]
  - Neutropenia [Unknown]
